FAERS Safety Report 9985753 (Version 1)
Quarter: 2014Q1

REPORT INFORMATION
  Report Type: Report from Study
  Country: US (occurrence: US)
  Receive Date: 20140307
  Receipt Date: 20140307
  Transmission Date: 20141002
  Serious: No
  Sender: FDA-Public Use
  Company Number: US-ABBVIE-13P-163-1090909-00

PATIENT
  Age: 60 Year
  Sex: Male

DRUGS (2)
  1. HUMIRA [Suspect]
     Indication: PSORIASIS
     Dates: start: 20121228
  2. LIPITOR [Concomitant]
     Indication: BLOOD CHOLESTEROL

REACTIONS (2)
  - Psoriasis [Recovering/Resolving]
  - Drug ineffective [Recovering/Resolving]
